FAERS Safety Report 17355220 (Version 3)
Quarter: 2020Q2

REPORT INFORMATION
  Report Type: Spontaneous
  Country: JP (occurrence: JP)
  Receive Date: 20200131
  Receipt Date: 20200616
  Transmission Date: 20200713
  Serious: Yes (Death)
  Sender: FDA-Public Use
  Company Number: JP-009507513-2001JPN003113J

PATIENT
  Age: 94 Year
  Sex: Female

DRUGS (6)
  1. STROMECTOL [Suspect]
     Active Substance: IVERMECTIN
     Dosage: 6 MILLIGRAM, QD
     Route: 048
     Dates: start: 20200103, end: 20200103
  2. SENNOSIDE [Concomitant]
     Active Substance: SENNOSIDES
     Indication: CONSTIPATION
     Dosage: 48 MILLIGRAM, QD
     Route: 048
     Dates: end: 20200108
  3. MAGMITT [Concomitant]
     Active Substance: MAGNESIUM OXIDE
     Indication: CONSTIPATION
     Dosage: 990 MILLIGRAM, BID(660 MG(MORNING) , 330 MG (NIGHT))
     Route: 048
     Dates: end: 20200108
  4. STROMECTOL [Suspect]
     Active Substance: IVERMECTIN
     Indication: ACARODERMATITIS
     Dosage: 6 MILLIGRAM, QD
     Route: 048
     Dates: start: 20191227, end: 20191227
  5. ENSURE [Concomitant]
     Active Substance: AMINO ACIDS\DEXTROSE\ELECTROLYTES NOS\SOYBEAN OIL\VITAMINS
     Indication: NUTRITIONAL SUPPLEMENTATION
     Dosage: 250 MILLILITER, QD
     Route: 048
     Dates: start: 20191208, end: 20200108
  6. AZUCURENIN S [Concomitant]
     Active Substance: GLUTAMINE
     Indication: GASTRIC DISORDER
     Dosage: 1.5 GRAM, TID
     Route: 048
     Dates: start: 20170802, end: 20200108

REACTIONS (2)
  - Hepatic function abnormal [Fatal]
  - Off label use [Unknown]

NARRATIVE: CASE EVENT DATE: 20191227
